FAERS Safety Report 4979608-0 (Version None)
Quarter: 2006Q2

REPORT INFORMATION
  Report Type: 
  Country: None (occurrence: None)
  Receive Date: 20060421
  Receipt Date: 20060411
  Transmission Date: 20061013
  Serious: Yes (Hospitalization)
  Sender: FDA-Public Use
  Company Number: GB-ROCHE-444835

PATIENT
  Sex: Female
  Weight: 70 kg

DRUGS (2)
  1. COPEGUS [Suspect]
     Indication: HEPATITIS C
     Route: 058
     Dates: start: 20051010, end: 20060306
  2. PEGASYS [Suspect]
     Indication: HEPATITIS C
     Route: 058
     Dates: start: 20051010, end: 20060306

REACTIONS (2)
  - ACCIDENT [None]
  - CONVULSION [None]
